FAERS Safety Report 19221930 (Version 1)
Quarter: 2021Q2

REPORT INFORMATION
  Report Type: Spontaneous
  Country: DE (occurrence: DE)
  Receive Date: 20210506
  Receipt Date: 20210506
  Transmission Date: 20210717
  Serious: Yes (Other)
  Sender: FDA-Public Use
  Company Number: DE-TORRENT-00020155

PATIENT
  Sex: Female

DRUGS (1)
  1. ARIPIPRAZOL HEUMANN 20 MG TABLETTEN [Suspect]
     Active Substance: ARIPIPRAZOLE
     Indication: PRODUCT USED FOR UNKNOWN INDICATION
     Dates: start: 201810

REACTIONS (17)
  - Drug hypersensitivity [Unknown]
  - Oedema peripheral [Unknown]
  - Urinary incontinence [Unknown]
  - Restlessness [Unknown]
  - Pollakiuria [Unknown]
  - Weight increased [Unknown]
  - Musculoskeletal stiffness [Unknown]
  - Night sweats [Unknown]
  - Diarrhoea [Unknown]
  - Abdominal distension [Unknown]
  - Reaction to excipient [Unknown]
  - Type 2 diabetes mellitus [Unknown]
  - Dermatitis contact [Unknown]
  - Abdominal discomfort [Unknown]
  - Hepatic steatosis [Unknown]
  - Peripheral swelling [Unknown]
  - Blood pressure increased [Unknown]
